FAERS Safety Report 14298736 (Version 1)
Quarter: 2017Q4

REPORT INFORMATION
  Report Type: Spontaneous
  Country: US (occurrence: US)
  Receive Date: 20171216
  Receipt Date: 20171216
  Transmission Date: 20180321
  Serious: Yes (Hospitalization)
  Sender: FDA-Public Use
  Company Number: None

PATIENT
  Age: 66 Year
  Sex: Male
  Weight: 99.6 kg

DRUGS (3)
  1. CYCLOPHOSPHAMIDE. [Suspect]
     Active Substance: CYCLOPHOSPHAMIDE
     Dates: end: 20171127
  2. CYTARABINE. [Suspect]
     Active Substance: CYTARABINE
     Dates: end: 20171127
  3. METHOTREXATE. [Suspect]
     Active Substance: METHOTREXATE
     Dates: end: 20171102

REACTIONS (2)
  - Blood bilirubin increased [None]
  - Jaundice [None]

NARRATIVE: CASE EVENT DATE: 20171212
